FAERS Safety Report 5673922-1 (Version None)
Quarter: 2008Q2

REPORT INFORMATION
  Report Type: 
  Country: None (occurrence: None)
  Receive Date: 20080228
  Receipt Date: 20071022
  Transmission Date: 20081010
  Serious: Yes (Other)
  Sender: FDA-Public Use
  Company Number: US200710005356

PATIENT
  Age: 30 Year
  Sex: Male

DRUGS (1)
  1. SYMBYAX [Suspect]
     Indication: BIPOLAR I DISORDER
     Dosage: 1 D/F

REACTIONS (1)
  - BLOOD TRIGLYCERIDES INCREASED [None]
